FAERS Safety Report 10652731 (Version 2)
Quarter: 2015Q1

REPORT INFORMATION
  Report Type: Spontaneous
  Country: US (occurrence: US)
  Receive Date: 20141215
  Receipt Date: 20150105
  Transmission Date: 20150720
  Serious: Yes (Other)
  Sender: FDA-Public Use
  Company Number: CHPA2014US016383

PATIENT
  Age: 71 Year
  Sex: Female

DRUGS (7)
  1. PREDNISONE. [Concomitant]
     Active Substance: PREDNISONE
     Indication: PRODUCT USED FOR UNKNOWN INDICATION
     Route: 065
  2. VOLTAREN [Suspect]
     Active Substance: DICLOFENAC SODIUM
     Indication: BACK DISORDER
     Dosage: TINY SQUIRT, QD
     Route: 061
  3. VOLTAREN [Suspect]
     Active Substance: DICLOFENAC SODIUM
     Indication: OFF LABEL USE
  4. VOLTAREN [Suspect]
     Active Substance: DICLOFENAC SODIUM
     Indication: NECK PAIN
     Dosage: TINY SQUIRT, QD
     Route: 061
     Dates: start: 2008
  5. TYLENOL [Concomitant]
     Active Substance: ACETAMINOPHEN
     Indication: PRODUCT USED FOR UNKNOWN INDICATION
     Dosage: UNK, Q4H
     Route: 048
  6. VOLTAREN [Suspect]
     Active Substance: DICLOFENAC SODIUM
     Indication: MUSCULOSKELETAL PAIN
  7. VOLTAREN [Suspect]
     Active Substance: DICLOFENAC SODIUM
     Indication: SCOLIOSIS

REACTIONS (9)
  - Arthritis [Not Recovered/Not Resolved]
  - Inappropriate schedule of drug administration [Unknown]
  - Drug ineffective for unapproved indication [Unknown]
  - Scoliosis [Not Recovered/Not Resolved]
  - Expired product administered [Unknown]
  - Wrong technique in drug usage process [Unknown]
  - Drug administered at inappropriate site [Unknown]
  - Nerve compression [Unknown]
  - Therapeutic response unexpected [Unknown]

NARRATIVE: CASE EVENT DATE: 2014
